FAERS Safety Report 5037298-5 (Version None)
Quarter: 2006Q2

REPORT INFORMATION
  Report Type: 
  Country: None (occurrence: None)
  Receive Date: 20060613
  Receipt Date: 20060306
  Transmission Date: 20061013
  Serious: Yes (Hospitalization, Other)
  Sender: FDA-Public Use
  Company Number: US-JNJFOC-20060301652

PATIENT
  Age: 25 Year
  Sex: Female
  Weight: 104.3273 kg

DRUGS (1)
  1. ORTHO EVRA [Suspect]
     Indication: DRUG USE FOR UNKNOWN INDICATION
     Dosage: TRANSDERMAL
     Route: 062
     Dates: start: 20030601

REACTIONS (2)
  - CEREBROVASCULAR ACCIDENT [None]
  - MENSTRUATION IRREGULAR [None]
